FAERS Safety Report 9920211 (Version 4)
Quarter: 2014Q2

REPORT INFORMATION
  Report Type: Spontaneous
  Country: RO (occurrence: RO)
  Receive Date: 20140224
  Receipt Date: 20140602
  Transmission Date: 20141212
  Serious: Yes (Hospitalization)
  Sender: FDA-Public Use
  Company Number: RO-JNJFOC-20140212675

PATIENT
  Age: 54 Year
  Sex: Male
  Weight: 77 kg

DRUGS (6)
  1. REMICADE [Suspect]
     Indication: ANKYLOSING SPONDYLITIS
     Dosage: 4 BOTTLES
     Route: 042
     Dates: end: 20131105
  2. REMICADE [Suspect]
     Indication: ANKYLOSING SPONDYLITIS
     Dosage: 4 BOTTLES
     Route: 042
     Dates: start: 20100514
  3. MONOPRIL [Concomitant]
     Route: 048
  4. LERIPID [Concomitant]
     Route: 048
  5. NEBILET [Concomitant]
     Route: 048
  6. TERTENSIF [Concomitant]
     Route: 048

REACTIONS (16)
  - Disseminated tuberculosis [Not Recovered/Not Resolved]
  - Inflammation [Recovering/Resolving]
  - Toxocariasis [Not Recovered/Not Resolved]
  - Hepatitis C [Unknown]
  - Central nervous system fungal infection [Unknown]
  - Myocardial ischaemia [Unknown]
  - Gastrooesophageal reflux disease [Unknown]
  - Brain neoplasm [Unknown]
  - Hiatus hernia [Unknown]
  - Cholestasis [Unknown]
  - Appendicitis [Recovered/Resolved]
  - Cholecystectomy [Unknown]
  - Osteoarthritis [Unknown]
  - Hypertension [Unknown]
  - Hepatocellular injury [Unknown]
  - Bronchitis chronic [Unknown]
